FAERS Safety Report 17159012 (Version 5)
Quarter: 2020Q2

REPORT INFORMATION
  Report Type: Report from Study
  Country: US (occurrence: US)
  Receive Date: 20191216
  Receipt Date: 20200402
  Transmission Date: 20200713
  Serious: Yes (Other)
  Sender: FDA-Public Use
  Company Number: US-PFIZER INC-2019458682

PATIENT
  Age: 47 Year
  Sex: Female

DRUGS (4)
  1. IBRANCE [Suspect]
     Active Substance: PALBOCICLIB
     Dosage: 125 MG, CYCLIC (21 DAYS ON, 7 DAYS OFF)
  2. IBRANCE [Suspect]
     Active Substance: PALBOCICLIB
     Dosage: 100 MG, CYCLIC (100 MG EVERY DAY FOR X 21 DAYS ON, THEN 7 DAYS OFF)
     Route: 048
     Dates: start: 20200129
  3. FEMARA [Concomitant]
     Active Substance: LETROZOLE
     Dosage: UNK
  4. IBRANCE [Suspect]
     Active Substance: PALBOCICLIB
     Indication: BREAST CANCER METASTATIC
     Dosage: 100 MG, CYCLIC (ONCE A DAY/100MG DAILY X 21 DAYS, THEN 7 DAYS OFF)
     Route: 048
     Dates: start: 20191002

REACTIONS (18)
  - Memory impairment [Unknown]
  - Nausea [Not Recovered/Not Resolved]
  - Bone marrow failure [Recovering/Resolving]
  - Faeces soft [Recovering/Resolving]
  - Nail disorder [Not Recovered/Not Resolved]
  - Weight decreased [Recovering/Resolving]
  - Malaise [Unknown]
  - Alopecia [Unknown]
  - Headache [Recovered/Resolved]
  - Migraine [Unknown]
  - Nasopharyngitis [Recovered/Resolved]
  - Onychoclasis [Unknown]
  - Cough [Recovering/Resolving]
  - Paranasal sinus hypersecretion [Unknown]
  - Hot flush [Unknown]
  - Laboratory test abnormal [Unknown]
  - Eye disorder [Recovering/Resolving]
  - Stomatitis [Recovered/Resolved]

NARRATIVE: CASE EVENT DATE: 2019
